FAERS Safety Report 23888219 (Version 4)
Quarter: 2024Q4

REPORT INFORMATION
  Report Type: Report from Study
  Country: US (occurrence: US)
  Receive Date: 20240523
  Receipt Date: 20241216
  Transmission Date: 20250114
  Serious: No
  Sender: ALEXION PHARMACEUTICALS
  Company Number: US-AstraZeneca-CH-00626661A

PATIENT

DRUGS (1)
  1. ULTOMIRIS [Suspect]
     Active Substance: RAVULIZUMAB-CWVZ
     Indication: Myasthenia gravis
     Dosage: UNK
     Route: 065

REACTIONS (5)
  - Cough [Recovering/Resolving]
  - Dyspnoea [Recovering/Resolving]
  - Chest discomfort [Unknown]
  - Fatigue [Unknown]
  - Atrioventricular block [Unknown]
